FAERS Safety Report 17104450 (Version 3)
Quarter: 2020Q1

REPORT INFORMATION
  Report Type: Other
  Country: DE (occurrence: DE)
  Receive Date: 20191203
  Receipt Date: 20200116
  Transmission Date: 20200409
  Serious: Yes (Hospitalization, Disabling, Other)
  Sender: FDA-Public Use
  Company Number: DE-CELLTRION INC.-2019DE026828

PATIENT

DRUGS (75)
  1. RITUXIMAB (UNKNOWN) [Suspect]
     Active Substance: RITUXIMAB
     Dosage: 750 MG
     Route: 041
     Dates: start: 20190314, end: 20190314
  2. CYCLOPHOSPHAMIDE. [Suspect]
     Active Substance: CYCLOPHOSPHAMIDE
     Dosage: 1500 MG, UNK
     Route: 041
     Dates: start: 20190315, end: 20190315
  3. DOXORUBICIN [Suspect]
     Active Substance: DOXORUBICIN
     Dosage: 100 MG, UNK
     Route: 041
     Dates: start: 20190427, end: 20190427
  4. PREDNISONE. [Suspect]
     Active Substance: PREDNISONE
     Dosage: 500 MG, UNK
     Route: 048
     Dates: start: 20190427, end: 20190501
  5. FORTECORTIN [Concomitant]
     Active Substance: DEXAMETHASONE
     Dosage: UNK
     Route: 065
     Dates: start: 20190831
  6. NEULASTA [Concomitant]
     Active Substance: PEGFILGRASTIM
     Indication: GENERAL PHYSICAL HEALTH DETERIORATION
     Dosage: 6 MG, UNK
     Route: 058
     Dates: start: 20190225, end: 20190225
  7. GRANISETRON [Concomitant]
     Active Substance: GRANISETRON
     Indication: GENERAL PHYSICAL HEALTH DETERIORATION
     Dosage: 3 MG, UNK
     Route: 042
     Dates: start: 20190222, end: 20190222
  8. VALACICLOVIR [Concomitant]
     Active Substance: VALACYCLOVIR HYDROCHLORIDE
     Indication: ORAL HERPES
     Dosage: 500 MG
     Route: 048
     Dates: start: 20190304, end: 20190606
  9. INNOHEP [Concomitant]
     Active Substance: TINZAPARIN SODIUM
     Indication: GENERAL PHYSICAL HEALTH DETERIORATION
     Dosage: 4500 IU, UNK
     Route: 058
     Dates: start: 20190220, end: 20190228
  10. METOPROLOL. [Concomitant]
     Active Substance: METOPROLOL
     Indication: GENERAL PHYSICAL HEALTH DETERIORATION
     Dosage: UNK
     Route: 048
     Dates: start: 20190807
  11. CYCLOPHOSPHAMIDE. [Suspect]
     Active Substance: CYCLOPHOSPHAMIDE
     Dosage: 1500 MG, UNK
     Route: 041
     Dates: start: 20190406, end: 20190406
  12. DOXORUBICIN [Suspect]
     Active Substance: DOXORUBICIN
     Dosage: 100 MG, UNK
     Route: 041
     Dates: start: 20190315, end: 20190315
  13. DOXORUBICIN [Suspect]
     Active Substance: DOXORUBICIN
     Dosage: 100.66 MG, UNK
     Route: 041
     Dates: start: 20190606, end: 20190606
  14. PREDNISONE. [Suspect]
     Active Substance: PREDNISONE
     Dosage: 500 MG, UNK
     Route: 048
     Dates: start: 20190406, end: 20190410
  15. VINCRISTINE [Suspect]
     Active Substance: VINCRISTINE
     Dosage: 2 MG, UNK
     Route: 041
     Dates: start: 20190315, end: 20190315
  16. DEKRISTOL [Concomitant]
     Active Substance: CHOLECALCIFEROL
     Indication: GENERAL PHYSICAL HEALTH DETERIORATION
     Dosage: 2000 IU, UNK
     Route: 048
     Dates: start: 20190221
  17. RANITIDIN [Concomitant]
     Active Substance: RANITIDINE HYDROCHLORIDE
     Indication: GENERAL PHYSICAL HEALTH DETERIORATION
     Dosage: 50 MG, UNK
     Route: 042
     Dates: start: 20190221, end: 20190221
  18. RANITIDIN [Concomitant]
     Active Substance: RANITIDINE HYDROCHLORIDE
     Dosage: 50 MG, UNK
     Route: 042
     Dates: start: 20190516, end: 20190516
  19. SOLU-DECORTIN [Concomitant]
     Active Substance: PREDNISOLONE SODIUM SUCCINATE
     Indication: PRODUCT USED FOR UNKNOWN INDICATION
     Dosage: 100 MG, UNK
     Route: 042
     Dates: start: 20190221, end: 20190221
  20. PANTOPRAZOL [Concomitant]
     Active Substance: PANTOPRAZOLE SODIUM
     Indication: GENERAL PHYSICAL HEALTH DETERIORATION
     Dosage: 40 MG, UNK
     Route: 048
     Dates: start: 20190304
  21. AMPHO-MORONAL [Concomitant]
     Active Substance: AMPHOTERICIN B
     Indication: PROPHYLAXIS
     Dosage: UNK
     Route: 048
     Dates: start: 20190221
  22. TAVOR [Concomitant]
     Indication: GENERAL PHYSICAL HEALTH DETERIORATION
     Dosage: UNK
     Route: 048
     Dates: start: 20190831, end: 20190831
  23. PREDNISONE. [Suspect]
     Active Substance: PREDNISONE
     Dosage: 500 MG, UNK
     Route: 048
     Dates: start: 20190315, end: 20190319
  24. PREDNISONE. [Suspect]
     Active Substance: PREDNISONE
     Dosage: 500 MG
     Route: 048
     Dates: start: 20190606, end: 20190610
  25. VINCRISTINE [Suspect]
     Active Substance: VINCRISTINE
     Dosage: 2 MG, UNK
     Route: 041
     Dates: start: 20190516, end: 20190516
  26. VINCRISTINE [Suspect]
     Active Substance: VINCRISTINE
     Dosage: 2.05 MG, UNK
     Route: 041
     Dates: start: 20190606, end: 20190606
  27. FORTECORTIN [Concomitant]
     Active Substance: DEXAMETHASONE
     Indication: DIFFUSE LARGE B-CELL LYMPHOMA
     Dosage: UNK
     Route: 065
     Dates: start: 20190516, end: 20190516
  28. MELPERON [Concomitant]
     Active Substance: MELPERONE
     Indication: GENERAL PHYSICAL HEALTH DETERIORATION
     Dosage: 50 MG, UNK
     Route: 048
     Dates: start: 20190224, end: 20190228
  29. ZOPLICONE [Concomitant]
     Active Substance: ZOPICLONE
     Indication: GENERAL PHYSICAL HEALTH DETERIORATION
     Dosage: 3.75 MG, UNK
     Route: 048
     Dates: start: 20190223, end: 20190223
  30. TORASEMID [Concomitant]
     Active Substance: TORSEMIDE
     Indication: GENERAL PHYSICAL HEALTH DETERIORATION
     Dosage: UNK
     Route: 048
     Dates: start: 20190807
  31. RITUXIMAB (UNKNOWN) [Suspect]
     Active Substance: RITUXIMAB
     Dosage: 734.29 MG, UNK
     Route: 041
     Dates: start: 20190405, end: 20190405
  32. RITUXIMAB (UNKNOWN) [Suspect]
     Active Substance: RITUXIMAB
     Dosage: 744.86 MG, UNK
     Route: 041
     Dates: start: 20190426, end: 20190426
  33. DOXORUBICIN [Suspect]
     Active Substance: DOXORUBICIN
     Dosage: 99.3 MG, UNK
     Route: 041
     Dates: start: 20190516
  34. VINCRISTINE [Suspect]
     Active Substance: VINCRISTINE
     Dosage: 2 MG, UNK
     Route: 041
     Dates: start: 20190406, end: 20190406
  35. VALTREX [Concomitant]
     Active Substance: VALACYCLOVIR HYDROCHLORIDE
     Dosage: 500 MG, UNK
     Route: 048
     Dates: start: 20190830
  36. LAVANID [Concomitant]
     Indication: GENERAL PHYSICAL HEALTH DETERIORATION
     Dosage: UNK
     Route: 062
     Dates: start: 20190220, end: 20190228
  37. INNOHEP [Concomitant]
     Active Substance: TINZAPARIN SODIUM
     Indication: PANCYTOPENIA
     Dosage: 4500 IU, UNK
     Route: 065
     Dates: start: 20190507, end: 20190510
  38. NACL.9% [Concomitant]
     Indication: GENERAL PHYSICAL HEALTH DETERIORATION
     Dosage: UNK
     Route: 042
     Dates: start: 20190224, end: 20190301
  39. RITUXIMAB (UNKNOWN) [Suspect]
     Active Substance: RITUXIMAB
     Dosage: 752.27 MG, UNK
     Route: 041
     Dates: start: 20190315, end: 20190315
  40. RITUXIMAB (UNKNOWN) [Suspect]
     Active Substance: RITUXIMAB
     Dosage: 744.86 MG, UNK
     Route: 041
     Dates: start: 20190426, end: 20190426
  41. RITUXIMAB (UNKNOWN) [Suspect]
     Active Substance: RITUXIMAB
     Dosage: 740.71 MG, UNK
     Route: 041
     Dates: start: 20190516, end: 20190516
  42. PREDNISONE. [Suspect]
     Active Substance: PREDNISONE
     Indication: DIFFUSE LARGE B-CELL LYMPHOMA
     Dosage: 500 MG, UNK
     Route: 048
     Dates: start: 20190222, end: 20190226
  43. VINCRISTINE [Suspect]
     Active Substance: VINCRISTINE
     Indication: DIFFUSE LARGE B-CELL LYMPHOMA
     Dosage: 2 MG, UNK
     Route: 041
     Dates: start: 20190222, end: 20190222
  44. LEVOFLOXACIN. [Concomitant]
     Active Substance: LEVOFLOXACIN
     Indication: GENERAL PHYSICAL HEALTH DETERIORATION
     Dosage: 500 MG, UNK
     Route: 048
     Dates: start: 20190304
  45. TAVEGIL [Concomitant]
     Active Substance: CLEMASTINE FUMARATE
     Indication: GENERAL PHYSICAL HEALTH DETERIORATION
     Dosage: 2 MG, UNK
     Route: 042
     Dates: start: 20190221, end: 20190221
  46. TAVEGIL [Concomitant]
     Active Substance: CLEMASTINE FUMARATE
     Dosage: 2 MG, UNK
     Route: 042
     Dates: start: 20190516, end: 20190516
  47. STEROFUNDIN [Concomitant]
     Active Substance: CALCIUM CHLORIDE\MAGNESIUM CHLORIDE\POTASSIUM CHLORIDE\SODIUM ACETATE\SODIUM CHLORIDE
     Indication: GENERAL PHYSICAL HEALTH DETERIORATION
     Dosage: UNK
     Route: 042
     Dates: start: 20190220, end: 20190224
  48. COTRIM FORTE [Concomitant]
     Active Substance: SULFAMETHOXAZOLE\TRIMETHOPRIM
     Indication: PROPHYLAXIS
     Dosage: 960 MG, UNK
     Route: 048
     Dates: start: 20190222
  49. L-THYROXIN [Concomitant]
     Active Substance: LEVOTHYROXINE SODIUM
     Indication: GENERAL PHYSICAL HEALTH DETERIORATION
     Dosage: UNK
     Route: 048
     Dates: start: 20190807
  50. RITUXIMAB (UNKNOWN) [Suspect]
     Active Substance: RITUXIMAB
     Indication: DIFFUSE LARGE B-CELL LYMPHOMA
     Dosage: 747.53 MG, UNK
     Route: 041
     Dates: start: 20190221, end: 20190221
  51. RITUXIMAB (UNKNOWN) [Suspect]
     Active Substance: RITUXIMAB
     Dosage: 752.27 MG, UNK
     Route: 041
     Dates: start: 20190315, end: 20190315
  52. DOXORUBICIN [Suspect]
     Active Substance: DOXORUBICIN
     Indication: DIFFUSE LARGE B-CELL LYMPHOMA
     Dosage: 100 MG, UNK
     Route: 041
     Dates: start: 20190222, end: 20190222
  53. PREDNISONE. [Suspect]
     Active Substance: PREDNISONE
     Dosage: 500 MG
     Route: 048
     Dates: start: 20190516, end: 20190520
  54. VALTREX [Concomitant]
     Active Substance: VALACYCLOVIR HYDROCHLORIDE
     Indication: PROPHYLAXIS
     Dosage: 500 MG, UNK
     Route: 048
     Dates: start: 20190220, end: 20190303
  55. ALLOPURINOL. [Concomitant]
     Active Substance: ALLOPURINOL
     Indication: GENERAL PHYSICAL HEALTH DETERIORATION
     Dosage: 300 MG, UNK
     Route: 048
     Dates: start: 20190221
  56. UROMITEXAN [Concomitant]
     Active Substance: MESNA
     Indication: GENERAL PHYSICAL HEALTH DETERIORATION
     Dosage: 100 MG/ML, UNK
     Route: 042
     Dates: start: 20190222, end: 20190222
  57. MOVICOL [Concomitant]
     Active Substance: POLYETHYLENE GLYCOL 3350\POTASSIUM CHLORIDE\SODIUM BICARBONATE\SODIUM CHLORIDE
     Indication: GENERAL PHYSICAL HEALTH DETERIORATION
     Dosage: UNK
     Route: 048
     Dates: start: 20190304
  58. PARACETAMOL [Concomitant]
     Active Substance: ACETAMINOPHEN
     Indication: GENERAL PHYSICAL HEALTH DETERIORATION
     Dosage: UNK
     Route: 048
     Dates: start: 20190516, end: 20190516
  59. RITUXIMAB (UNKNOWN) [Suspect]
     Active Substance: RITUXIMAB
     Dosage: 747.53 MG, UNK
     Route: 041
     Dates: start: 20190221, end: 20190221
  60. RITUXIMAB (UNKNOWN) [Suspect]
     Active Substance: RITUXIMAB
     Dosage: 754.15 MG, UNK
     Route: 041
     Dates: start: 20190606
  61. CYCLOPHOSPHAMIDE. [Suspect]
     Active Substance: CYCLOPHOSPHAMIDE
     Indication: DIFFUSE LARGE B-CELL LYMPHOMA
     Dosage: 1500 MG, UNK
     Route: 041
     Dates: start: 20190222, end: 20190222
  62. CYCLOPHOSPHAMIDE. [Suspect]
     Active Substance: CYCLOPHOSPHAMIDE
     Dosage: 1500 MG, UNK
     Route: 041
     Dates: start: 20190427, end: 20190427
  63. DOXORUBICIN [Suspect]
     Active Substance: DOXORUBICIN
     Dosage: 100 MG, UNK
     Route: 041
     Dates: start: 20190406, end: 20190406
  64. NACL.9% [Concomitant]
     Dosage: UNK
     Route: 042
     Dates: start: 20190516, end: 20190516
  65. KEVATRIL [Concomitant]
     Active Substance: GRANISETRON HYDROCHLORIDE
     Indication: GENERAL PHYSICAL HEALTH DETERIORATION
     Dosage: UNK
     Route: 042
     Dates: start: 20190516, end: 20190516
  66. RITUXIMAB (UNKNOWN) [Suspect]
     Active Substance: RITUXIMAB
     Dosage: 734.29 MG, UNK
     Route: 041
     Dates: start: 20190405, end: 20190405
  67. CYCLOPHOSPHAMIDE. [Suspect]
     Active Substance: CYCLOPHOSPHAMIDE
     Dosage: 1507.27 MG, UNK
     Route: 041
     Dates: start: 20190516, end: 20190516
  68. CYCLOPHOSPHAMIDE. [Suspect]
     Active Substance: CYCLOPHOSPHAMIDE
     Dosage: 1499.05 MG, UNK
     Route: 041
     Dates: start: 20190606, end: 20190606
  69. VINCRISTINE [Suspect]
     Active Substance: VINCRISTINE
     Dosage: 2 MG, UNK
     Route: 041
     Dates: start: 20190427, end: 20190427
  70. LASIX [Concomitant]
     Active Substance: FUROSEMIDE
     Indication: GENERAL PHYSICAL HEALTH DETERIORATION
     Dosage: 40 MG, UNK
     Route: 042
     Dates: start: 20190224, end: 20190228
  71. ECURAL [Concomitant]
     Active Substance: MOMETASONE
     Indication: DERMATITIS
     Dosage: UNK
     Route: 062
     Dates: start: 20190225, end: 20190303
  72. VALACICLOVIR [Concomitant]
     Active Substance: VALACYCLOVIR HYDROCHLORIDE
     Indication: GENERAL PHYSICAL HEALTH DETERIORATION
     Dosage: 500 MG, UNK
     Route: 048
     Dates: start: 20190208, end: 20190606
  73. INNOHEP [Concomitant]
     Active Substance: TINZAPARIN SODIUM
     Indication: PROPHYLAXIS
     Dosage: UNK
     Route: 042
     Dates: start: 20190807, end: 20190807
  74. BISOPROLOL [Concomitant]
     Active Substance: BISOPROLOL
     Indication: HYPERTENSION
     Dosage: 5 MG, UNK
     Route: 048
     Dates: start: 20190221
  75. DESLORATADIN [Concomitant]
     Active Substance: DESLORATADINE
     Indication: GENERAL PHYSICAL HEALTH DETERIORATION
     Dosage: UNK
     Route: 048
     Dates: start: 20190220

REACTIONS (17)
  - Metastases to central nervous system [Not Recovered/Not Resolved]
  - Anaemia [Not Recovered/Not Resolved]
  - Acute kidney injury [Unknown]
  - Oral herpes [Recovered/Resolved]
  - Communication disorder [Not Recovered/Not Resolved]
  - Pancytopenia [Recovered/Resolved]
  - Leukopenia [Not Recovered/Not Resolved]
  - Neutropenia [Unknown]
  - Pyrexia [Recovered/Resolved]
  - Dermatitis [Recovered/Resolved]
  - Tumour lysis syndrome [Recovered/Resolved]
  - Personality change [Not Recovered/Not Resolved]
  - Urinary retention [Recovered/Resolved]
  - Neutropenic sepsis [Unknown]
  - Memory impairment [Not Recovered/Not Resolved]
  - Cough [Unknown]
  - Underdose [Unknown]

NARRATIVE: CASE EVENT DATE: 20190224
